FAERS Safety Report 8937049 (Version 1)
Quarter: 2012Q4

REPORT INFORMATION
  Report Type: 
  Country: JP (occurrence: JP)
  Receive Date: 20121130
  Receipt Date: 20121130
  Transmission Date: 20130627
  Serious: Yes (Hospitalization)
  Sender: FDA-Public Use
  Company Number: JP-009507513-2012SP027563

PATIENT
  Age: 45 Year
  Sex: Male
  Weight: 74 kg

DRUGS (7)
  1. PEGINTRON [Suspect]
     Indication: CHRONIC HEPATITIS C
     Dosage: 1.5 Microgram per kilogram, qw
     Route: 058
     Dates: start: 20120308, end: 20120425
  2. REBETOL [Suspect]
     Indication: CHRONIC HEPATITIS C
     Dosage: 800 mg, qd
     Route: 048
     Dates: start: 20120308, end: 20120502
  3. TELAVIC [Suspect]
     Indication: CHRONIC HEPATITIS C
     Dosage: 2250 mg, qd
     Route: 048
     Dates: start: 20120308, end: 20120427
  4. TAKEPRON [Concomitant]
     Indication: GASTROOESOPHAGEAL REFLUX DISEASE
     Dosage: 30 mg, qd
     Route: 048
  5. TAKEPRON [Concomitant]
     Dosage: 15 mg, qd
     Route: 048
  6. LENDORMIN [Concomitant]
     Indication: INSOMNIA
     Dosage: 0.25mg/day, prn
     Route: 048
  7. LOXONIN [Concomitant]
     Dosage: UNK, prn
     Route: 048
     Dates: start: 20120308, end: 20120418

REACTIONS (1)
  - Generalised erythema [Recovering/Resolving]
